FAERS Safety Report 10013959 (Version 1)
Quarter: 2014Q1

REPORT INFORMATION
  Report Type: Spontaneous
  Country: FR (occurrence: FR)
  Receive Date: 20140316
  Receipt Date: 20140316
  Transmission Date: 20141002
  Serious: Yes (Other)
  Sender: FDA-Public Use
  Company Number: FR-JNJFOC-20140217225

PATIENT
  Age: 51 Year
  Sex: Male
  Weight: 78 kg

DRUGS (1)
  1. XARELTO [Suspect]
     Indication: VARICOSE VEIN
     Route: 048
     Dates: start: 20140218, end: 20140304

REACTIONS (2)
  - Diarrhoea [Recovered/Resolved]
  - Off label use [Unknown]
